FAERS Safety Report 9138816 (Version 3)
Quarter: 2013Q2

REPORT INFORMATION
  Report Type: Spontaneous
  Country: US (occurrence: US)
  Receive Date: 20130305
  Receipt Date: 20130430
  Transmission Date: 20140414
  Serious: Yes (Life-Threatening, Hospitalization, Other)
  Sender: FDA-Public Use
  Company Number: US-BAYER-2013-024325

PATIENT
  Age: 89 Year
  Sex: Male
  Weight: 78.01 kg

DRUGS (2)
  1. STIVARGA [Suspect]
     Indication: COLON CANCER
     Dosage: UNK
     Route: 048
  2. COUMADIN [Concomitant]
     Indication: ATRIAL FIBRILLATION

REACTIONS (1)
  - International normalised ratio abnormal [None]
